FAERS Safety Report 4333207-2 (Version None)
Quarter: 2004Q2

REPORT INFORMATION
  Report Type: 
  Country: None (occurrence: None)
  Receive Date: 20040402
  Receipt Date: 20040325
  Transmission Date: 20050107
  Serious: Yes (Life-Threatening, Other)
  Sender: FDA-Public Use
  Company Number: FRWYE280603SEP03

PATIENT
  Age: 12 Hour
  Sex: Female

DRUGS (4)
  1. EFFEXOR [Suspect]
     Indication: DEPRESSION
     Dosage: 25 MG 1 X PER 1 DAY, ORAL
     Route: 048
  2. CHLORPROMAZINE [Suspect]
     Indication: VOMITING IN PREGNANCY
     Dosage: ORAL
     Route: 048
  3. XANAX [Suspect]
     Dosage: 0.25 MG 1 X PER 1 DAY, ORAL
     Route: 048
  4. MIRTAZAPINE [Concomitant]

REACTIONS (8)
  - BLOOD PH DECREASED [None]
  - CARDIO-RESPIRATORY DISTRESS [None]
  - DRUG EXPOSURE DURING PREGNANCY [None]
  - FORCEPS DELIVERY [None]
  - NEONATAL DISORDER [None]
  - PREMATURE BABY [None]
  - REGURGITATION OF FOOD [None]
  - SEDATION [None]
